FAERS Safety Report 9778812 (Version 3)
Quarter: 2014Q1

REPORT INFORMATION
  Report Type: Spontaneous
  Country: US (occurrence: US)
  Receive Date: 20131223
  Receipt Date: 20140206
  Transmission Date: 20141002
  Serious: Yes (Death)
  Sender: FDA-Public Use
  Company Number: US-ALLERGAN-1319949US

PATIENT
  Age: 86 Year
  Sex: Female

DRUGS (2)
  1. LUMIGAN 0.01% [Suspect]
     Indication: GLAUCOMA
     Dosage: 1 DROP IN EACH EYE, AT NIGHT
     Route: 047
  2. BETOPTIC [Concomitant]
     Indication: GLAUCOMA
     Dosage: 1 DROP IN BOTH EYES, TWICE A DAY
     Route: 047

REACTIONS (1)
  - Death [Fatal]
